FAERS Safety Report 20688059 (Version 4)
Quarter: 2024Q4

REPORT INFORMATION
  Report Type: Report from Study
  Country: FR (occurrence: FR)
  Receive Date: 20220408
  Receipt Date: 20241114
  Transmission Date: 20250115
  Serious: Yes (Hospitalization, Other)
  Sender: RECORDATI
  Company Number: FR-RECORDATI-2022001381

PATIENT

DRUGS (6)
  1. CARBAGLU [Suspect]
     Active Substance: CARGLUMIC ACID
     Indication: Propionic acidaemia
     Dosage: 200 MILLIGRAM, QID
     Dates: start: 20190131
  2. CARBAGLU [Suspect]
     Active Substance: CARGLUMIC ACID
     Dosage: 200 MILLIGRAM
     Route: 048
     Dates: start: 20220503
  3. CARBAGLU [Suspect]
     Active Substance: CARGLUMIC ACID
     Dosage: 800 MILLIGRAM, BID
     Route: 048
     Dates: start: 20220510
  4. Biotine [Concomitant]
     Indication: Propionic acidaemia
     Dosage: 10 MILLIGRAM
     Route: 048
     Dates: start: 20090323
  5. LEVOCARNITINE [Concomitant]
     Active Substance: LEVOCARNITINE
     Indication: Propionic acidaemia
     Dosage: 1 GRAM
     Dates: start: 2009
  6. LEVOCARNITINE [Concomitant]
     Active Substance: LEVOCARNITINE
     Dosage: 5 MILLILITER PER ORAL SOLUTION
     Route: 048
     Dates: start: 20110705

REACTIONS (15)
  - Ketosis [Recovered/Resolved]
  - Gastroenteritis viral [Recovered/Resolved]
  - Psychotic disorder [Recovering/Resolving]
  - Respiratory syncytial virus infection [Recovered/Resolved]
  - Gastroenteritis norovirus [Recovered/Resolved]
  - Asthenia [Recovered/Resolved]
  - Lipase increased [Recovered/Resolved]
  - Abdominal pain [Recovered/Resolved]
  - Vomiting [Recovered/Resolved]
  - Vomiting [Recovered/Resolved]
  - Vomiting [Recovered/Resolved]
  - Vomiting [Recovered/Resolved]
  - Vomiting [Recovered/Resolved]
  - Vomiting [Recovered/Resolved]
  - Vomiting [Recovered/Resolved]

NARRATIVE: CASE EVENT DATE: 20210626
